FAERS Safety Report 6764295-1 (Version None)
Quarter: 2010Q2

REPORT INFORMATION
  Report Type: 
  Country: None (occurrence: None)
  Receive Date: 20100610
  Receipt Date: 20100604
  Transmission Date: 20101027
  Serious: Yes (Other)
  Sender: FDA-Public Use
  Company Number: ES-MERCK-1006USA00961

PATIENT
  Age: 50 Year
  Sex: Male

DRUGS (7)
  1. DECADRON [Suspect]
     Indication: NEOPLASM PROGRESSION
     Route: 048
     Dates: start: 20061101
  2. DECADRON [Suspect]
     Route: 048
     Dates: start: 20060101
  3. CARMUSTINE [Concomitant]
     Indication: NEOPLASM PROGRESSION
     Route: 065
  4. PHENYTOIN [Suspect]
     Indication: STATUS EPILEPTICUS
     Route: 048
  5. PHENYTOIN [Suspect]
     Dosage: IN THREE DOSES
     Route: 048
     Dates: start: 20060101
  6. PHENYTOIN [Suspect]
     Route: 042
  7. CISPLATIN AND FLUOROURACIL [Concomitant]
     Indication: NEOPLASM PROGRESSION
     Route: 065

REACTIONS (2)
  - DRUG INTERACTION [None]
  - OPHTHALMOPLEGIA [None]
